FAERS Safety Report 8619414 (Version 4)
Quarter: 2013Q3

REPORT INFORMATION
  Report Type: Spontaneous
  Country: FR (occurrence: FR)
  Receive Date: 20120618
  Receipt Date: 20130801
  Transmission Date: 20140515
  Serious: Yes (Life-Threatening, Hospitalization)
  Sender: FDA-Public Use
  Company Number: FR-ASTRAZENECA-2012SE39566

PATIENT
  Age: 60 Year
  Sex: Female

DRUGS (14)
  1. INEXIUM [Suspect]
     Route: 048
     Dates: start: 20120120, end: 20120208
  2. TENORMINE [Suspect]
     Route: 048
     Dates: start: 20120208, end: 20120215
  3. DEROXAT [Suspect]
     Route: 048
     Dates: start: 20120206, end: 20120213
  4. TAZOCILLINE [Suspect]
     Route: 042
     Dates: start: 20120115, end: 20120121
  5. VANCOMYCINE [Suspect]
     Route: 042
     Dates: start: 20120119, end: 20120126
  6. AMIKACINE [Suspect]
     Route: 042
     Dates: start: 20120119, end: 20120125
  7. TIENAM [Suspect]
     Route: 042
     Dates: start: 20120121, end: 20120203
  8. CORDARONE [Suspect]
     Route: 042
     Dates: start: 20120117, end: 20120129
  9. FUROSEMIDE [Suspect]
     Route: 042
     Dates: start: 20120109, end: 20120122
  10. EUPANTOL [Suspect]
     Route: 065
     Dates: start: 20120109, end: 20120117
  11. IOMERON [Suspect]
     Route: 042
     Dates: start: 20120131, end: 20120131
  12. ZYVOXID [Suspect]
     Route: 042
     Dates: start: 20120205, end: 20120207
  13. AZANTAC [Suspect]
     Route: 048
     Dates: start: 20120208, end: 20120210
  14. KARDEGIC [Suspect]
     Route: 048
     Dates: start: 20120206, end: 20120215

REACTIONS (4)
  - Neutropenia [Recovered/Resolved]
  - Drug reaction with eosinophilia and systemic symptoms [Recovered/Resolved]
  - Pneumonia [Unknown]
  - Acute respiratory distress syndrome [Unknown]
